FAERS Safety Report 5098071-5 (Version None)
Quarter: 2006Q3

REPORT INFORMATION
  Report Type: 
  Country: None (occurrence: None)
  Receive Date: 20060906
  Receipt Date: 20060703
  Transmission Date: 20061208
  Serious: Yes (Hospitalization, Other)
  Sender: FDA-Public Use
  Company Number: US-AMGEN-STX185216

PATIENT
  Sex: Female

DRUGS (10)
  1. ENBREL [Suspect]
     Indication: RHEUMATOID ARTHRITIS
     Route: 058
     Dates: start: 19990101
  2. METHOTREXATE [Concomitant]
     Route: 048
     Dates: start: 20000801
  3. PREDNISONE TAB [Concomitant]
     Dates: start: 19970129
  4. CARTIA XT [Concomitant]
  5. TRAZODONE HCL [Concomitant]
  6. ZOLOFT [Concomitant]
  7. HYDROCODONE BITARTRATE [Concomitant]
  8. ALLEGRA [Concomitant]
  9. LIDODERM PATCH (ENDO PHARMACEUTICALS) [Concomitant]
  10. VITAMINS NOS [Concomitant]

REACTIONS (8)
  - ASTHENIA [None]
  - COMPRESSION FRACTURE [None]
  - ENDOMETRIAL CANCER [None]
  - MUSCULOSKELETAL PAIN [None]
  - OSTEOPOROSIS [None]
  - SPINAL COMPRESSION FRACTURE [None]
  - URINARY INCONTINENCE [None]
  - UTERINE CANCER [None]
